FAERS Safety Report 7475714-X (Version None)
Quarter: 2011Q2

REPORT INFORMATION
  Report Type: 
  Country: None (occurrence: None)
  Receive Date: 20110512
  Receipt Date: 20110505
  Transmission Date: 20111010
  Serious: Yes (Other)
  Sender: FDA-Public Use
  Company Number: US-ROCHE-775981

PATIENT
  Age: 4 Year
  Sex: Female

DRUGS (1)
  1. TAMIFLU [Suspect]
     Route: 065

REACTIONS (4)
  - AFFECT LABILITY [None]
  - AGGRESSION [None]
  - CONFUSIONAL STATE [None]
  - MEMORY IMPAIRMENT [None]
